FAERS Safety Report 18453553 (Version 1)
Quarter: 2020Q4

REPORT INFORMATION
  Report Type: Spontaneous
  Country: IT (occurrence: IT)
  Receive Date: 20201102
  Receipt Date: 20201102
  Transmission Date: 20210114
  Serious: Yes (Other)
  Sender: FDA-Public Use
  Company Number: IT-INCYTE CORPORATION-2020IN010827

PATIENT

DRUGS (2)
  1. BINOCRIT 30.000IU [Suspect]
     Active Substance: ERYTHROPOIETIN
     Indication: MYELOFIBROSIS
     Dosage: 30000 IU, QW
     Route: 065
  2. JAKAVI [Suspect]
     Active Substance: RUXOLITINIB
     Indication: MYELOFIBROSIS
     Dosage: 15 MG, QD
     Route: 065

REACTIONS (1)
  - Acute leukaemia [Unknown]
